FAERS Safety Report 17414693 (Version 2)
Quarter: 2020Q1

REPORT INFORMATION
  Report Type: Spontaneous
  Country: US (occurrence: US)
  Receive Date: 20200213
  Receipt Date: 20200302
  Transmission Date: 20200409
  Serious: Yes (Other)
  Sender: FDA-Public Use
  Company Number: US-BRISTOL-MYERS SQUIBB COMPANY-BMS-2020-011257

PATIENT
  Sex: Male

DRUGS (2)
  1. VYNDAQEL [Suspect]
     Active Substance: TAFAMIDIS MEGLUMINE
     Indication: AMYLOIDOSIS
     Dosage: 80 MILLIGRAM
     Route: 065
     Dates: start: 201911
  2. ELIQUIS [Suspect]
     Active Substance: APIXABAN
     Indication: CEREBROVASCULAR ACCIDENT PROPHYLAXIS
     Dosage: UNK
     Route: 065

REACTIONS (13)
  - Dizziness [Unknown]
  - Asthenia [Unknown]
  - Dyspnoea [Unknown]
  - Headache [Unknown]
  - Haemorrhage [Unknown]
  - Choking [Unknown]
  - Weight increased [Unknown]
  - Sleep apnoea syndrome [Unknown]
  - Peripheral swelling [Unknown]
  - Lethargy [Unknown]
  - Exercise tolerance decreased [Unknown]
  - Cardiac amyloidosis [Unknown]
  - Contusion [Unknown]
